FAERS Safety Report 7559702-0 (Version None)
Quarter: 2011Q2

REPORT INFORMATION
  Report Type: 
  Country: None (occurrence: None)
  Receive Date: 20110617
  Receipt Date: 20110617
  Transmission Date: 20111010
  Serious: Yes (Other)
  Sender: FDA-Public Use
  Company Number: None

PATIENT
  Age: 69 Year
  Sex: Male
  Weight: 90.7194 kg

DRUGS (1)
  1. FINASTERIDE [Suspect]
     Indication: NOCTURIA
     Dosage: 5 MG 1 PO
     Route: 048
     Dates: start: 20100101, end: 20110615

REACTIONS (3)
  - NOCTURIA [None]
  - CONDITION AGGRAVATED [None]
  - DRUG INEFFECTIVE [None]
